FAERS Safety Report 23839466 (Version 1)
Quarter: 2024Q2

REPORT INFORMATION
  Report Type: Report from Study
  Country: EG (occurrence: EG)
  Receive Date: 20240510
  Receipt Date: 20240510
  Transmission Date: 20240716
  Serious: No
  Sender: FDA-Public Use
  Company Number: EG-SANDOZ-SDZ2023EG022679

PATIENT
  Age: 12 Year
  Sex: Female
  Weight: 23 kg

DRUGS (2)
  1. OMNITROPE [Suspect]
     Active Substance: SOMATROPIN
     Indication: Growth hormone deficiency
     Dosage: 10 MG/0.1 ML
     Route: 058
  2. LEVOTHYROXINE [Concomitant]
     Active Substance: LEVOTHYROXINE\LEVOTHYROXINE SODIUM
     Indication: Hypothyroidism
     Dosage: 100 MCI, 1TAB/DAY
     Route: 065

REACTIONS (6)
  - Injection site pain [Not Recovered/Not Resolved]
  - Wrong device used [Not Recovered/Not Resolved]
  - Medication error [Unknown]
  - Injection site bruising [Not Recovered/Not Resolved]
  - Product dose omission issue [Recovered/Resolved]
  - Medication error [Not Recovered/Not Resolved]

NARRATIVE: CASE EVENT DATE: 20230626
